FAERS Safety Report 21267728 (Version 1)
Quarter: 2022Q3

REPORT INFORMATION
  Report Type: Spontaneous
  Country: AU (occurrence: AU)
  Receive Date: 20220829
  Receipt Date: 20220829
  Transmission Date: 20221027
  Serious: Yes (Hospitalization, Other)
  Sender: FDA-Public Use
  Company Number: AU-SA-SAC20220629000453

PATIENT
  Sex: Male

DRUGS (1)
  1. LIBTAYO [Suspect]
     Active Substance: CEMIPLIMAB-RWLC
     Indication: Skin squamous cell carcinoma metastatic
     Dosage: 350 MG, QOW
     Route: 042
     Dates: start: 20211216, end: 20220424

REACTIONS (1)
  - Limbic encephalitis [Recovered/Resolved]

NARRATIVE: CASE EVENT DATE: 20220423
